FAERS Safety Report 17255684 (Version 5)
Quarter: 2020Q2

REPORT INFORMATION
  Report Type: Spontaneous
  Country: US (occurrence: US)
  Receive Date: 20200110
  Receipt Date: 20200623
  Transmission Date: 20200713
  Serious: No
  Sender: FDA-Public Use
  Company Number: NVSC2020US002605

PATIENT
  Sex: Female

DRUGS (1)
  1. SANDOSTATIN LAR DEPOT [Suspect]
     Active Substance: OCTREOTIDE ACETATE
     Indication: PRODUCT USED FOR UNKNOWN INDICATION
     Dosage: 30 MG (EVERY 28 DAYS)
     Route: 065

REACTIONS (4)
  - Incorrect dose administered [Unknown]
  - Syringe issue [Unknown]
  - Product physical issue [Unknown]
  - Accidental exposure to product [Unknown]
